FAERS Safety Report 13087990 (Version 1)
Quarter: 2017Q1

REPORT INFORMATION
  Report Type: Spontaneous
  Country: DE (occurrence: DE)
  Receive Date: 20170105
  Receipt Date: 20170105
  Transmission Date: 20170428
  Serious: Yes (Death, Hospitalization)
  Sender: FDA-Public Use
  Company Number: DE-TEVA-725136GER

PATIENT
  Age: 74 Year
  Sex: Male

DRUGS (5)
  1. DEXAMETHASONE. [Concomitant]
     Active Substance: DEXAMETHASONE
     Indication: LOCAL SWELLING
     Dosage: 20 MG
     Route: 065
  2. DOXORUBICIN [Suspect]
     Active Substance: DOXORUBICIN
     Indication: HEPATOCELLULAR CARCINOMA
     Dosage: LOADED WITH 50 MG INJECTION
     Route: 065
  3. ONDANSETRON [Concomitant]
     Active Substance: ONDANSETRON
     Indication: ANTIEMETIC SUPPORTIVE CARE
     Dosage: 8 MG
     Route: 042
  4. TRAMADOL. [Concomitant]
     Active Substance: TRAMADOL
     Indication: ANALGESIC THERAPY
     Dosage: 200 MG
     Route: 042
  5. PETHIDINE [Concomitant]
     Active Substance: MEPERIDINE
     Indication: ANALGESIC THERAPY
     Dosage: 50 MG
     Route: 013

REACTIONS (3)
  - Shock [Fatal]
  - Hepatic rupture [Fatal]
  - Intra-abdominal haemorrhage [Fatal]
